FAERS Safety Report 7116107-4 (Version None)
Quarter: 2010Q4

REPORT INFORMATION
  Report Type: 
  Country: None (occurrence: None)
  Receive Date: 20101122
  Receipt Date: 20101108
  Transmission Date: 20110411
  Serious: Yes (Death, Hospitalization)
  Sender: FDA-Public Use
  Company Number: FR-PFIZER INC-FR-WYE-H18063710

PATIENT
  Age: 81 Year
  Sex: Female

DRUGS (2)
  1. AMIODARONE HCL [Suspect]
     Indication: ATRIAL FIBRILLATION
     Dosage: 200 MG, UNK
     Route: 048
     Dates: start: 20090101, end: 20100901
  2. PREVISCAN [Concomitant]
     Dosage: UNK
     Dates: start: 20090101

REACTIONS (2)
  - HYPERTHYROIDISM [None]
  - ISCHAEMIC STROKE [None]
